FAERS Safety Report 10945032 (Version 1)
Quarter: 2015Q1

REPORT INFORMATION
  Report Type: Spontaneous
  Country: US (occurrence: None)
  Receive Date: 20150212
  Receipt Date: 20150212
  Transmission Date: 20150721
  Serious: No
  Sender: FDA-Public Use
  Company Number: TPA2011A00447

PATIENT
  Age: 72 Year
  Sex: Female
  Weight: 64.86 kg

DRUGS (3)
  1. MECLOMEN (MECLOFENAMATE SODIUM) [Concomitant]
  2. ULORIC [Suspect]
     Active Substance: FEBUXOSTAT
     Indication: GOUT
     Route: 048
     Dates: start: 20110127
  3. COLCHICINE (COLCHICINE) [Concomitant]
     Active Substance: COLCHICINE

REACTIONS (3)
  - Oedema [None]
  - Dysuria [None]
  - Drug ineffective [None]
